FAERS Safety Report 4569112-6 (Version None)
Quarter: 2005Q1

REPORT INFORMATION
  Report Type: 
  Country: None (occurrence: None)
  Receive Date: 20050201
  Receipt Date: 20050119
  Transmission Date: 20050727
  Serious: Yes (Other)
  Sender: FDA-Public Use
  Company Number: HQWYE749020JAN05

PATIENT
  Sex: Male
  Weight: 68.1 kg

DRUGS (6)
  1. CORDARONE [Suspect]
     Indication: ARRHYTHMOGENIC RIGHT VENTRICULAR DYSPLASIA
     Dosage: 200 MG 1 X PER 1 DAY, ORAL
     Route: 048
     Dates: start: 19970101
  2. SYNTHROID [Concomitant]
  3. BETAPACE [Concomitant]
  4. CELEXA [Concomitant]
  5. KLONOPI (CLONAZEPAM) [Concomitant]
  6. VASOTEC [Concomitant]

REACTIONS (6)
  - BASAL CELL CARCINOMA [None]
  - FATIGUE [None]
  - HALO VISION [None]
  - HYPOTHYROIDISM [None]
  - MONOCYTOSIS [None]
  - PHOTOSENSITIVITY REACTION [None]
